FAERS Safety Report 14605058 (Version 1)
Quarter: 2018Q1

REPORT INFORMATION
  Report Type: Spontaneous
  Country: US (occurrence: US)
  Receive Date: 20180306
  Receipt Date: 20180306
  Transmission Date: 20180509
  Serious: Yes (Hospitalization, Other)
  Sender: FDA-Public Use
  Company Number: None

PATIENT
  Age: 73 Year
  Sex: Female
  Weight: 70.65 kg

DRUGS (13)
  1. ALBUTEROL. [Concomitant]
     Active Substance: ALBUTEROL
  2. METOPROLOL SUCCINATE. [Concomitant]
     Active Substance: METOPROLOL SUCCINATE
  3. NINLARO [Suspect]
     Active Substance: IXAZOMIB CITRATE
     Indication: PLASMA CELL MYELOMA
     Dosage: ?          OTHER FREQUENCY:WEEKLY;?
     Route: 048
     Dates: start: 20180208, end: 20180306
  4. CALTRATE [Concomitant]
     Active Substance: CALCIUM CARBONATE
  5. MULTIVITAMINS [Concomitant]
     Active Substance: VITAMINS
  6. NIFEDIPINE. [Concomitant]
     Active Substance: NIFEDIPINE
  7. ACYCLOVIR. [Concomitant]
     Active Substance: ACYCLOVIR
  8. DEXAMETHASONE. [Concomitant]
     Active Substance: DEXAMETHASONE
  9. ADVAIR HFA [Concomitant]
     Active Substance: FLUTICASONE PROPIONATE\SALMETEROL XINAFOATE
  10. SPIRIVA [Concomitant]
     Active Substance: TIOTROPIUM BROMIDE MONOHYDRATE
  11. FAMOTIDINE. [Concomitant]
     Active Substance: FAMOTIDINE
  12. NASONEX [Concomitant]
     Active Substance: MOMETASONE FUROATE
  13. GABAPENTIN. [Concomitant]
     Active Substance: GABAPENTIN

REACTIONS (5)
  - Dehydration [None]
  - Disorientation [None]
  - Confusional state [None]
  - Dyspnoea [None]
  - Chest pain [None]
